FAERS Safety Report 8017283-1 (Version None)
Quarter: 2012Q1

REPORT INFORMATION
  Report Type: 
  Country: None (occurrence: None)
  Receive Date: 20120102
  Receipt Date: 20111229
  Transmission Date: 20120608
  Serious: Yes (Other)
  Sender: FDA-Public Use
  Company Number: PHHY2011US09926

PATIENT
  Sex: Female
  Weight: 126 kg

DRUGS (1)
  1. GILENYA [Suspect]
     Indication: MULTIPLE SCLEROSIS
     Dosage: 0.5 MG, QD
     Route: 048
     Dates: start: 20101229

REACTIONS (10)
  - HEADACHE [None]
  - VISION BLURRED [None]
  - FATIGUE [None]
  - VISUAL ACUITY REDUCED [None]
  - NASOPHARYNGITIS [None]
  - PHOTOPSIA [None]
  - PAIN [None]
  - VISUAL FIELD DEFECT [None]
  - BLOOD PRESSURE INCREASED [None]
  - MIGRAINE [None]
